FAERS Safety Report 9844534 (Version 1)
Quarter: 2014Q1

REPORT INFORMATION
  Report Type: Spontaneous
  Country: US (occurrence: US)
  Receive Date: 20140127
  Receipt Date: 20140127
  Transmission Date: 20141002
  Serious: Yes (Death, Other)
  Sender: FDA-Public Use
  Company Number: US-CELGENEUS-163-20785-14012616

PATIENT
  Sex: 0

DRUGS (7)
  1. THALOMID [Suspect]
     Indication: AMYLOIDOSIS
     Dosage: 200 MILLIGRAM
     Route: 048
  2. THALOMID [Suspect]
     Indication: PLASMA CELL MYELOMA
     Dosage: 100 MILLIGRAM
     Route: 048
  3. MELPHALAN [Suspect]
     Indication: AMYLOIDOSIS
     Route: 065
  4. MELPHALAN [Suspect]
     Route: 065
  5. DEXAMETHASONE [Suspect]
     Indication: AMYLOIDOSIS
     Dosage: 20 MILLIGRAM
     Route: 065
  6. DEXAMETHASONE [Suspect]
     Dosage: 40 MILLIGRAM
     Route: 065
  7. CYCLOPHOSPHAMIDE [Concomitant]
     Indication: PRODUCT USED FOR UNKNOWN INDICATION
     Dosage: 2.5 G/M2
     Route: 065

REACTIONS (8)
  - Amyloidosis [Fatal]
  - Plasma cell myeloma [Fatal]
  - Cardiac disorder [Unknown]
  - Lung disorder [Unknown]
  - Renal disorder [Unknown]
  - Gastrointestinal disorder [Unknown]
  - Liver disorder [Unknown]
  - Fatigue [Unknown]
